FAERS Safety Report 7432292-9 (Version None)
Quarter: 2011Q2

REPORT INFORMATION
  Report Type: 
  Country: None (occurrence: None)
  Receive Date: 20110415
  Receipt Date: 20110406
  Transmission Date: 20111010
  Serious: Yes (Hospitalization, Disabling, Other)
  Sender: FDA-Public Use
  Company Number: 2011SP000367

PATIENT
  Age: 26 Year
  Sex: Female

DRUGS (1)
  1. NUVARING [Suspect]
     Indication: CONTRACEPTION
     Dates: start: 20080101, end: 20090105

REACTIONS (9)
  - MIGRAINE [None]
  - PULMONARY EMBOLISM [None]
  - INJURY [None]
  - NEPHROLITHIASIS [None]
  - THROMBOPHLEBITIS SUPERFICIAL [None]
  - FLANK PAIN [None]
  - VISUAL IMPAIRMENT [None]
  - PREGNANCY [None]
  - BLOOD URINE PRESENT [None]
